FAERS Safety Report 23809968 (Version 2)
Quarter: 2024Q2

REPORT INFORMATION
  Report Type: Spontaneous
  Country: ES (occurrence: ES)
  Receive Date: 20240502
  Receipt Date: 20240615
  Transmission Date: 20240716
  Serious: Yes (Life-Threatening, Hospitalization)
  Sender: FDA-Public Use
  Company Number: ES-TEVA-VS-3191657

PATIENT
  Age: 80 Year
  Sex: Male

DRUGS (1)
  1. OLMESARTAN [Suspect]
     Active Substance: OLMESARTAN
     Indication: Hypertension
     Route: 065

REACTIONS (3)
  - Sprue-like enteropathy [Recovering/Resolving]
  - Hypovolaemic shock [Unknown]
  - Acute kidney injury [Unknown]
